FAERS Safety Report 23371321 (Version 4)
Quarter: 2024Q1

REPORT INFORMATION
  Report Type: Report from Study
  Country: CN (occurrence: CN)
  Receive Date: 20240105
  Receipt Date: 20240222
  Transmission Date: 20240410
  Serious: No
  Sender: FDA-Public Use
  Company Number: CN-PFIZER INC-PV202400000041

PATIENT
  Age: 78 Year
  Sex: Female

DRUGS (35)
  1. NIRMATRELVIR\RITONAVIR [Suspect]
     Active Substance: NIRMATRELVIR\RITONAVIR
     Dosage: [NIRMATRELVIR 300MG]/[RITONAVIR 100 MG], BID
     Dates: start: 20220507, end: 20220512
  2. NIRMATRELVIR\RITONAVIR [Suspect]
     Active Substance: NIRMATRELVIR\RITONAVIR
     Dosage: [NIRMATRELVIR 300MG]/[RITONAVIR 100 MG], BID
     Dates: start: 20220517, end: 20220522
  3. THYMALFASIN [Concomitant]
     Active Substance: THYMALFASIN
     Indication: Immune disorder prophylaxis
     Dosage: UNK
     Route: 058
     Dates: start: 20220506, end: 20220509
  4. ADALAT [Concomitant]
     Active Substance: NIFEDIPINE
     Indication: Hypotension
     Dosage: UNK
     Route: 048
     Dates: start: 20220506, end: 20220506
  5. ADALAT [Concomitant]
     Active Substance: NIFEDIPINE
     Dosage: UNK
     Route: 048
     Dates: start: 20220506, end: 20220509
  6. ACARBOSE [Concomitant]
     Active Substance: ACARBOSE
     Indication: Hypoglycaemia
     Dosage: UNK
     Route: 048
     Dates: start: 20220506, end: 20220506
  7. ACARBOSE [Concomitant]
     Active Substance: ACARBOSE
     Dosage: UNK
     Route: 048
     Dates: start: 20220506, end: 20220509
  8. ESOMEPRAZOLE SODIUM [Concomitant]
     Active Substance: ESOMEPRAZOLE SODIUM
     Indication: Prophylaxis
     Dosage: UNK
     Route: 042
     Dates: start: 20220506, end: 20220507
  9. ESOMEPRAZOLE SODIUM [Concomitant]
     Active Substance: ESOMEPRAZOLE SODIUM
     Dosage: UNK
     Route: 042
     Dates: start: 20220507, end: 20220508
  10. HUMAN IMMUNOGLOBULIN G [Concomitant]
     Active Substance: HUMAN IMMUNOGLOBULIN G
     Indication: Immune disorder prophylaxis
     Dosage: (PH4)
     Route: 042
     Dates: start: 20220506, end: 20220509
  11. ALBUMIN HUMAN [Concomitant]
     Active Substance: ALBUMIN HUMAN
     Indication: Immune disorder prophylaxis
     Dosage: UNK
     Route: 042
     Dates: start: 20220507, end: 20220509
  12. ALBUMIN HUMAN [Concomitant]
     Active Substance: ALBUMIN HUMAN
     Indication: Supplementation therapy
     Dosage: UNK
     Route: 042
     Dates: start: 20220509, end: 20220513
  13. KANG FU XIN [Concomitant]
     Indication: Mucosal disorder
     Dosage: LIQUID
     Route: 048
     Dates: start: 20220508, end: 20220509
  14. THROMBIN [Concomitant]
     Active Substance: THROMBIN
     Indication: Haemostasis
     Dosage: FREEZE-DRIED POWDER
     Route: 048
     Dates: start: 20220509, end: 20220509
  15. OCTREOTIDE ACETATE [Concomitant]
     Active Substance: OCTREOTIDE ACETATE
     Indication: Gastrooesophageal reflux disease
     Dosage: UNK
     Route: 042
     Dates: start: 20220509, end: 20220509
  16. RECOMBINANT HUMAN THROMBOPOIETIN [Concomitant]
     Active Substance: RECOMBINANT HUMAN THROMBOPOIETIN
     Indication: Supplementation therapy
     Dosage: UNK
     Route: 058
     Dates: start: 20220509, end: 20220509
  17. HERBALS [Concomitant]
     Active Substance: HERBALS
     Indication: Antiviral treatment
     Dosage: UNK
     Route: 042
     Dates: start: 20220509, end: 20220509
  18. INSULIN HUMAN [Concomitant]
     Active Substance: INSULIN HUMAN
     Indication: Hypoglycaemia
     Dosage: UNK
     Dates: start: 20220510, end: 20220513
  19. INSULIN GLARGINE [Concomitant]
     Active Substance: INSULIN GLARGINE
     Indication: Hypoglycaemia
     Dosage: OTHER
     Route: 050
     Dates: start: 20220512, end: 20220513
  20. VITAMINS [Concomitant]
     Active Substance: VITAMINS
     Indication: Supplementation therapy
     Dosage: UNK
     Route: 042
     Dates: start: 20220513, end: 20220513
  21. NOREPINEPHRINE BITARTRATE [Concomitant]
     Active Substance: NOREPINEPHRINE BITARTRATE
     Indication: Blood pressure increased
     Dosage: UNK
     Dates: start: 20220514, end: 20220517
  22. FUROSEMIDE [Concomitant]
     Active Substance: FUROSEMIDE
     Indication: Polyuria
     Dosage: UNK
     Route: 048
     Dates: start: 20220519, end: 20220519
  23. HERBALS [Concomitant]
     Active Substance: HERBALS
     Indication: Antiviral treatment
     Dosage: DRINK, NASOGASTRIC
     Dates: start: 20220520, end: 20220523
  24. LIDOCAINE HYDROCHLORIDE [Concomitant]
     Active Substance: LIDOCAINE HYDROCHLORIDE
     Indication: Maintenance of anaesthesia
     Dosage: UNK
     Dates: start: 20220507, end: 20220507
  25. CALCIUM GLUCONATE [Concomitant]
     Active Substance: CALCIUM GLUCONATE
     Indication: Mineral supplementation
     Dosage: UNK
     Route: 042
     Dates: start: 20220513, end: 20220513
  26. CALCIUM GLUCONATE [Concomitant]
     Active Substance: CALCIUM GLUCONATE
     Indication: Mineral supplementation
  27. SODIUM BICARBONATE [Concomitant]
     Active Substance: SODIUM BICARBONATE
     Indication: Acidosis
     Dosage: UNK
     Route: 042
     Dates: start: 20220515, end: 20220515
  28. DEXTROSE [Concomitant]
     Active Substance: DEXTROSE\DEXTROSE MONOHYDRATE
     Indication: Supplementation therapy
     Dosage: UNK
     Route: 042
     Dates: start: 20220516, end: 20220516
  29. CALCIUM CHLORIDE\POTASSIUM CHLORIDE\SODIUM CHLORIDE\SODIUM LACTATE [Concomitant]
     Active Substance: CALCIUM CHLORIDE\POTASSIUM CHLORIDE\SODIUM CHLORIDE\SODIUM LACTATE
     Indication: Infusion
     Dosage: UNK
     Route: 042
     Dates: start: 20220517, end: 20220517
  30. POTASSIUM CHLORIDE [Concomitant]
     Active Substance: POTASSIUM CHLORIDE
     Indication: Mineral supplementation
     Dosage: UNK
     Route: 042
     Dates: start: 20220519, end: 20220519
  31. FRUCTOSE DIPHOSPHATE SODIUM [Concomitant]
     Indication: Nutritional supplementation
     Dosage: UNK
     Route: 042
     Dates: start: 20220507, end: 20220507
  32. ISOSORBIDE DINITRATE [Concomitant]
     Active Substance: ISOSORBIDE DINITRATE
     Indication: Blood pressure decreased
     Dosage: UNK
     Route: 042
     Dates: start: 20220523, end: 20220523
  33. FENTANYL CITRATE [Concomitant]
     Active Substance: FENTANYL CITRATE
     Indication: Pain
     Dosage: UNK
     Route: 042
     Dates: start: 20220524, end: 20220524
  34. NOREPINEPHRINE BITARTRATE [Concomitant]
     Active Substance: NOREPINEPHRINE BITARTRATE
     Indication: Hypotonia
     Dosage: UNK
     Route: 042
     Dates: start: 20220524, end: 20220524
  35. ROCURONIUM BROMIDE [Concomitant]
     Active Substance: ROCURONIUM BROMIDE
     Indication: Drug dependence
     Dosage: UNK
     Route: 042
     Dates: start: 20220524, end: 20220524

REACTIONS (1)
  - Overdose [Unknown]
